FAERS Safety Report 20217235 (Version 1)
Quarter: 2021Q4

REPORT INFORMATION
  Report Type: Spontaneous
  Country: US (occurrence: None)
  Receive Date: 20211222
  Receipt Date: 20211222
  Transmission Date: 20220303
  Serious: Yes (Hospitalization)
  Sender: FDA-Public Use
  Company Number: None

PATIENT
  Sex: Female

DRUGS (1)
  1. GEMCITABINE HCL [Suspect]
     Active Substance: GEMCITABINE HYDROCHLORIDE
     Indication: Cholangiocarcinoma
     Dosage: OTHER FREQUENCY : EVERY1,8,15;?
     Route: 042
     Dates: start: 20211209

REACTIONS (9)
  - Pain [None]
  - Pyrexia [None]
  - Vomiting [None]
  - Internal haemorrhage [None]
  - Rectal haemorrhage [None]
  - White blood cell count decreased [None]
  - Haemoglobin decreased [None]
  - Platelet count decreased [None]
  - Therapy interrupted [None]
